FAERS Safety Report 11031936 (Version 2)
Quarter: 2015Q2

REPORT INFORMATION
  Report Type: Report from Study
  Country: JP (occurrence: JP)
  Receive Date: 20150415
  Receipt Date: 20150417
  Transmission Date: 20150821
  Serious: Yes (Death, Life-Threatening)
  Sender: FDA-Public Use
  Company Number: JP-PFIZER INC-2015127080

PATIENT
  Age: 83 Year
  Sex: Female
  Weight: 43 kg

DRUGS (14)
  1. SLONNON [Suspect]
     Active Substance: ARGATROBAN
     Dosage: UNK (1 MIN)
     Route: 041
     Dates: end: 20140902
  2. HEPARIN SODIUM. [Concomitant]
     Active Substance: HEPARIN SODIUM
     Indication: VERTEBRAL ARTERY STENOSIS
     Dosage: UNK
     Dates: start: 20140813
  3. WARFARIN [Concomitant]
     Active Substance: WARFARIN
     Dosage: 0.5 MG, UNK
     Route: 048
     Dates: start: 20141012, end: 20141107
  4. SIGMART [Concomitant]
     Active Substance: NICORANDIL
     Indication: ANGINA PECTORIS
     Dosage: 3 DF, 1X/DAY
     Route: 048
     Dates: start: 20141007
  5. SLONNON [Suspect]
     Active Substance: ARGATROBAN
     Dosage: 0.18 UG/KG (1 MIN)
     Route: 041
     Dates: start: 20141027, end: 20141031
  6. SLONNON [Suspect]
     Active Substance: ARGATROBAN
     Dosage: 0.05 UG/KG (1 MIN)
     Route: 041
     Dates: start: 20141103, end: 20141110
  7. WARFARIN [Concomitant]
     Active Substance: WARFARIN
     Dosage: 0.5 MG, UNK
     Route: 048
     Dates: start: 20141003, end: 20141004
  8. WARFARIN [Concomitant]
     Active Substance: WARFARIN
     Dosage: 1 MG, UNK
     Route: 048
     Dates: start: 20141005, end: 20141009
  9. ARTIST [Concomitant]
     Active Substance: CARVEDILOL
     Indication: HYPERTENSION
     Dosage: 1 DF, 1X/DAY
     Route: 048
     Dates: start: 20141007
  10. SLONNON [Suspect]
     Active Substance: ARGATROBAN
     Indication: HEPARIN-INDUCED THROMBOCYTOPENIA
     Dosage: 0.35 UG/KG (1 MIN)
     Route: 041
     Dates: start: 20140829, end: 20140902
  11. SLONNON [Suspect]
     Active Substance: ARGATROBAN
     Dosage: 0.18 UG/KG (1 MIN)
     Route: 041
     Dates: start: 20141023, end: 20141024
  12. SLONNON [Suspect]
     Active Substance: ARGATROBAN
     Dosage: 0.1 UG/KG (1 MIN)
     Route: 041
     Dates: start: 20141110, end: 20141112
  13. VASOLATOR [Concomitant]
     Indication: ANGINA PECTORIS
     Dosage: UNK
     Route: 061
     Dates: start: 20141007
  14. SLONNON [Suspect]
     Active Substance: ARGATROBAN
     Dosage: 0.09 UG/KG (1 MIN)
     Route: 041
     Dates: start: 20141024, end: 20141025

REACTIONS (3)
  - Mediastinitis [Fatal]
  - Aortic injury [Fatal]
  - Brain stem infarction [Fatal]

NARRATIVE: CASE EVENT DATE: 20140916
